FAERS Safety Report 8435344-X (Version None)
Quarter: 2012Q2

REPORT INFORMATION
  Report Type: 
  Country: None (occurrence: None)
  Receive Date: 20120614
  Receipt Date: 20120605
  Transmission Date: 20120825
  Serious: Yes (Hospitalization)
  Sender: FDA-Public Use
  Company Number: US-JNJFOC-20120413765

PATIENT
  Age: 54 Year
  Sex: Male
  Weight: 153.6 kg

DRUGS (17)
  1. MOTRIN [Suspect]
     Indication: LUMBAR SPINAL STENOSIS
     Route: 048
     Dates: start: 20110201, end: 20120415
  2. AN UNKNOWN MEDICATION [Suspect]
     Indication: PRODUCT USED FOR UNKNOWN INDICATION
     Route: 065
  3. SIMVASTATIN [Concomitant]
     Indication: BLOOD CHOLESTEROL INCREASED
     Route: 048
     Dates: start: 20120419
  4. LISINOPRIL [Concomitant]
     Indication: HYPERTENSION
     Route: 048
     Dates: start: 20120419
  5. LISINOPRIL [Concomitant]
     Route: 048
     Dates: start: 20110201, end: 20120419
  6. SIMVASTATIN [Concomitant]
     Route: 048
     Dates: start: 20100101, end: 20120419
  7. METOPROLOL TARTRATE [Concomitant]
     Indication: HYPERTENSION
     Route: 048
     Dates: start: 20110201, end: 20120419
  8. HUMALOG [Concomitant]
     Indication: DIABETES MELLITUS
     Dosage: 40 UNITS
     Route: 058
     Dates: start: 20120419
  9. VICODIN [Concomitant]
     Indication: LUMBAR SPINAL STENOSIS
     Route: 048
     Dates: start: 20120419
  10. PREVACID [Concomitant]
     Indication: GASTRITIS
     Route: 048
     Dates: start: 20120419
  11. METOPROLOL TARTRATE [Concomitant]
     Route: 048
     Dates: start: 20120419
  12. MOTRIN [Suspect]
     Route: 048
  13. SEROQUEL XR [Concomitant]
     Indication: DEPRESSION
     Route: 048
     Dates: start: 20120419
  14. AMBIEN [Concomitant]
     Indication: INSOMNIA
     Route: 048
     Dates: start: 20120419
  15. METFORMIN HCL [Concomitant]
     Indication: DIABETES MELLITUS
     Route: 048
     Dates: start: 20050101
  16. GLYBURIDE [Concomitant]
     Indication: DIABETES MELLITUS
     Route: 048
     Dates: start: 20050101
  17. LANTUS [Concomitant]
     Indication: DIABETES MELLITUS
     Dosage: 30 UNITS
     Route: 058
     Dates: start: 20120419

REACTIONS (3)
  - CEREBROVASCULAR ACCIDENT [None]
  - GASTROOESOPHAGEAL REFLUX DISEASE [None]
  - GASTRITIS [None]
